FAERS Safety Report 9552287 (Version 3)
Quarter: 2013Q4

REPORT INFORMATION
  Report Type: Spontaneous
  Country: US (occurrence: US)
  Receive Date: 20130925
  Receipt Date: 20131014
  Transmission Date: 20140711
  Serious: No
  Sender: FDA-Public Use
  Company Number: US-009507513-1309USA011440

PATIENT
  Sex: Female
  Weight: 63.49 kg

DRUGS (6)
  1. CLARITIN-D-12 [Suspect]
     Indication: HYPERSENSITIVITY
     Dosage: UNK, UNKNOWN
     Route: 048
     Dates: start: 20130827, end: 20130906
  2. CLARITIN-D-12 [Suspect]
     Indication: SINUS CONGESTION
  3. CLARITIN-D-12 [Suspect]
     Indication: HEADACHE
  4. CLARITIN-D-12 [Suspect]
     Indication: FACIAL PAIN
  5. CLARITIN-D-12 [Suspect]
     Indication: TENDERNESS
  6. ARMOUR THYROID TABLETS [Concomitant]
     Indication: HYPOTHYROIDISM
     Dosage: UNK, UNKNOWN

REACTIONS (1)
  - Drug ineffective [Unknown]
